FAERS Safety Report 4699291-1 (Version None)
Quarter: 2005Q2

REPORT INFORMATION
  Report Type: 
  Country: None (occurrence: None)
  Receive Date: 20050624
  Receipt Date: 20050621
  Transmission Date: 20051028
  Serious: Yes (Hospitalization)
  Sender: FDA-Public Use
  Company Number: US-GLAXOSMITHKLINE-A0563626A

PATIENT
  Age: 36 Year
  Sex: Male

DRUGS (4)
  1. LAMICTAL [Suspect]
     Indication: BIPOLAR DISORDER
     Route: 048
     Dates: end: 20050601
  2. LITHIUM CARBONATE [Concomitant]
  3. ZYPREXA [Concomitant]
  4. PROZAC [Concomitant]

REACTIONS (4)
  - CHAPPED LIPS [None]
  - RASH [None]
  - SWOLLEN TONGUE [None]
  - TONGUE HAEMORRHAGE [None]
